FAERS Safety Report 8127797-1 (Version None)
Quarter: 2012Q1

REPORT INFORMATION
  Report Type: 
  Country: None (occurrence: None)
  Receive Date: 20120210
  Receipt Date: 20120206
  Transmission Date: 20120608
  Serious: Yes (Hospitalization)
  Sender: FDA-Public Use
  Company Number: US-B.I. PHARMACEUTICALS,INC./RIDGEFIELD-2012-BP-02279BP

PATIENT
  Sex: Female

DRUGS (2)
  1. OXYGEN [Concomitant]
     Indication: DYSPNOEA
     Route: 045
     Dates: start: 20110901
  2. SPIRIVA [Suspect]
     Indication: EMPHYSEMA
     Dosage: 18 MCG
     Route: 055
     Dates: start: 20100101

REACTIONS (2)
  - PRODUCTIVE COUGH [None]
  - FATIGUE [None]
